FAERS Safety Report 19322379 (Version 1)
Quarter: 2021Q2

REPORT INFORMATION
  Report Type: Spontaneous
  Country: JP (occurrence: JP)
  Receive Date: 20210528
  Receipt Date: 20210528
  Transmission Date: 20210717
  Serious: Yes (Other)
  Sender: FDA-Public Use
  Company Number: JP-009507513-2105JPN006441

PATIENT
  Age: 62 Year
  Sex: Female

DRUGS (1)
  1. PEMBROLIZUMAB. [Suspect]
     Active Substance: PEMBROLIZUMAB
     Dosage: 200MG/BODYWEIGHT, TWO CYCLES
     Dates: start: 2018, end: 201810

REACTIONS (2)
  - Diarrhoea [Unknown]
  - Sarcoid-like reaction [Recovered/Resolved]

NARRATIVE: CASE EVENT DATE: 201810
